FAERS Safety Report 6121659-7 (Version None)
Quarter: 2009Q1

REPORT INFORMATION
  Report Type: 
  Country: None (occurrence: None)
  Receive Date: 20090317
  Receipt Date: 20090305
  Transmission Date: 20090719
  Serious: Yes (Hospitalization)
  Sender: FDA-Public Use
  Company Number: DE-GENENTECH-279191

PATIENT
  Sex: Female

DRUGS (3)
  1. TRASTUZUMAB [Suspect]
     Indication: BREAST CANCER
     Dosage: UNK
     Route: 042
     Dates: start: 20070906, end: 20071122
  2. LAPATINIB [Suspect]
     Indication: BREAST CANCER
     Dosage: 1500 MG, QD
     Route: 048
     Dates: start: 20080107, end: 20080828
  3. OMEPRAZOLE [Concomitant]
     Indication: GASTRIC ULCER
     Dosage: UNK

REACTIONS (2)
  - MYOCARDITIS [None]
  - PSYCHOTIC DISORDER [None]
